FAERS Safety Report 6228637-8 (Version None)
Quarter: 2009Q2

REPORT INFORMATION
  Report Type: 
  Country: None (occurrence: None)
  Receive Date: 20090612
  Receipt Date: 20090605
  Transmission Date: 20091009
  Serious: Yes (Other)
  Sender: FDA-Public Use
  Company Number: BR-ABBOTT-09P-020-0578188-00

PATIENT
  Age: 83 Year
  Sex: Female
  Weight: 45 kg

DRUGS (6)
  1. AKINETON [Suspect]
     Indication: PARKINSON'S DISEASE
  2. AKINETON [Suspect]
  3. AKINETON [Suspect]
  4. AKINETON [Suspect]
     Route: 048
     Dates: start: 20090301
  5. BIPERIDEN HYDROCHLORIDE TAB [Suspect]
     Indication: PARKINSON'S DISEASE
     Dosage: FROM ANOTHER DRUG COMPANY
     Dates: start: 19960101
  6. CALTREN [Concomitant]
     Indication: BLOOD PRESSURE MANAGEMENT
     Route: 048

REACTIONS (2)
  - HALLUCINATION [None]
  - TREMOR [None]
